FAERS Safety Report 5331058-3 (Version None)
Quarter: 2007Q2

REPORT INFORMATION
  Report Type: 
  Country: None (occurrence: None)
  Receive Date: 20070522
  Receipt Date: 20070516
  Transmission Date: 20071010
  Serious: Yes (Other)
  Sender: FDA-Public Use
  Company Number: B0469111A

PATIENT
  Age: 54 Year
  Sex: Female
  Weight: 78 kg

DRUGS (2)
  1. AVANDIA [Suspect]
     Dosage: 4MG PER DAY
     Route: 065
     Dates: start: 20060216, end: 20070426
  2. GLICLAZIDE DIAMICRON [Concomitant]
     Dosage: 60MG PER DAY
     Dates: start: 20040316

REACTIONS (2)
  - FALL [None]
  - ULNA FRACTURE [None]
